FAERS Safety Report 5666147-7 (Version None)
Quarter: 2008Q1

REPORT INFORMATION
  Report Type: 
  Country: None (occurrence: None)
  Receive Date: 20080314
  Receipt Date: 20080114
  Transmission Date: 20080703
  Serious: No
  Sender: FDA-Public Use
  Company Number: US-ABBOTT-07P-163-0429974-00

PATIENT
  Sex: Male

DRUGS (1)
  1. HUMIRA [Suspect]

REACTIONS (3)
  - RHEUMATOID ARTHRITIS [None]
  - SCLERITIS [None]
  - SCLEROMALACIA [None]
